FAERS Safety Report 5154486-8 (Version None)
Quarter: 2006Q4

REPORT INFORMATION
  Report Type: 
  Country: None (occurrence: None)
  Receive Date: 20061114
  Receipt Date: 20061101
  Transmission Date: 20070319
  Serious: Yes (Hospitalization)
  Sender: FDA-Public Use
  Company Number: HQWYE042101NOV06

PATIENT
  Age: 65 Year
  Sex: Female

DRUGS (4)
  1. ETODOLAC [Suspect]
     Indication: RHEUMATOID ARTHRITIS
     Dosage: 400 MG 1X PER 1 DAY ORAL; ^ LONG TIME ^
     Route: 048
  2. PREDNISONE TAB [Concomitant]
  3. METHOTREXATE [Concomitant]
  4. FAMOTIDINE [Concomitant]

REACTIONS (12)
  - ADHESION [None]
  - CANDIDIASIS [None]
  - CONDITION AGGRAVATED [None]
  - GASTRIC ULCER PERFORATION [None]
  - GASTROINTESTINAL FISTULA [None]
  - MUSCULAR WEAKNESS [None]
  - PLEURAL EFFUSION [None]
  - PLEURAL FISTULA [None]
  - PNEUMOTHORAX [None]
  - PYOTHORAX [None]
  - RHEUMATOID ARTHRITIS [None]
  - SUBDIAPHRAGMATIC ABSCESS [None]
